FAERS Safety Report 5935863-1 (Version None)
Quarter: 2008Q4

REPORT INFORMATION
  Report Type: 
  Country: None (occurrence: None)
  Receive Date: 20081030
  Receipt Date: 20081028
  Transmission Date: 20090506
  Serious: Yes (Disabling)
  Sender: FDA-Public Use
  Company Number: ES-BRISTOL-MYERS SQUIBB COMPANY-14386841

PATIENT
  Age: 81 Year
  Sex: Male

DRUGS (2)
  1. KARVEZIDE [Suspect]
     Dosage: 1 DOSAGE FORM = 300/12.5 MG
     Route: 048
     Dates: end: 20081001
  2. CALCIUM ANTAGONIST [Concomitant]

REACTIONS (2)
  - PSORIASIS [None]
  - SKIN EXFOLIATION [None]
